FAERS Safety Report 10633613 (Version 4)
Quarter: 2021Q3

REPORT INFORMATION
  Report Type: Spontaneous
  Country: US (occurrence: US)
  Receive Date: 20141205
  Receipt Date: 20210721
  Transmission Date: 20211014
  Serious: No
  Sender: FDA-Public Use
  Company Number: US-JNJFOC-20141119138

PATIENT
  Age: 15 Year
  Sex: Male

DRUGS (2)
  1. RISPERIDONE. [Suspect]
     Active Substance: RISPERIDONE
     Indication: INSOMNIA
     Route: 048
     Dates: start: 2007, end: 2011
  2. RISPERIDONE. [Suspect]
     Active Substance: RISPERIDONE
     Indication: ATTENTION DEFICIT HYPERACTIVITY DISORDER
     Route: 048
     Dates: start: 1998, end: 2000

REACTIONS (8)
  - Abnormal weight gain [Unknown]
  - Drug ineffective [Unknown]
  - Galactorrhoea [Unknown]
  - Hyperprolactinaemia [Unknown]
  - Gynaecomastia [Unknown]
  - Off label use [Unknown]
  - Sexual dysfunction [Unknown]
  - Product use in unapproved indication [Unknown]
